FAERS Safety Report 18972728 (Version 1)
Quarter: 2021Q1

REPORT INFORMATION
  Report Type: Spontaneous
  Country: US (occurrence: US)
  Receive Date: 20210305
  Receipt Date: 20210305
  Transmission Date: 20210420
  Serious: Yes (Hospitalization)
  Sender: FDA-Public Use
  Company Number: None

PATIENT
  Age: 64 Year
  Sex: Male
  Weight: 77.1 kg

DRUGS (14)
  1. BACLOFEN. [Concomitant]
     Active Substance: BACLOFEN
  2. BUPRENORPHINE. [Concomitant]
     Active Substance: BUPRENORPHINE
  3. BENZONATATE. [Concomitant]
     Active Substance: BENZONATATE
  4. LENALIDOMIDE [Concomitant]
     Active Substance: LENALIDOMIDE
  5. CASIRIVIMAB?IMDEVIMAB [Suspect]
     Active Substance: CASIRIVIMAB\IMDEVIMAB
     Indication: COVID-19
     Dosage: ?          OTHER FREQUENCY:ONCE;?
     Route: 042
     Dates: start: 20210219, end: 20210219
  6. DIPHENOXYLATE?ATROPINE [Concomitant]
     Active Substance: ATROPINE\DIPHENOXYLATE
  7. OXYCODONE IR [Concomitant]
     Active Substance: OXYCODONE
  8. ZOLPIDEM [Concomitant]
     Active Substance: ZOLPIDEM TARTRATE
  9. ONDANSETRON [Concomitant]
     Active Substance: ONDANSETRON
  10. PREDNISONE. [Concomitant]
     Active Substance: PREDNISONE
  11. ACYCLOVIR 400MG [Concomitant]
     Active Substance: ACYCLOVIR
     Dates: start: 20201118
  12. GABAPENTIN. [Concomitant]
     Active Substance: GABAPENTIN
  13. LORAZEPAM. [Concomitant]
     Active Substance: LORAZEPAM
  14. PANTOPRAZOLE [Concomitant]
     Active Substance: PANTOPRAZOLE

REACTIONS (19)
  - Tachycardia [None]
  - Cardiac disorder [None]
  - Pneumococcal sepsis [None]
  - Sepsis [None]
  - Diarrhoea [None]
  - Rhabdomyolysis [None]
  - Hypoxia [None]
  - COVID-19 pneumonia [None]
  - Legionella test positive [None]
  - Acute kidney injury [None]
  - Encephalopathy [None]
  - Pseudomonal bacteraemia [None]
  - Altered state of consciousness [None]
  - Tachypnoea [None]
  - Pancytopenia [None]
  - Respiratory failure [None]
  - Metabolic acidosis [None]
  - Cardiac failure [None]
  - Febrile neutropenia [None]

NARRATIVE: CASE EVENT DATE: 20210225
